FAERS Safety Report 15630176 (Version 3)
Quarter: 2023Q1

REPORT INFORMATION
  Report Type: Spontaneous
  Country: AT (occurrence: AT)
  Receive Date: 20181118
  Receipt Date: 20230126
  Transmission Date: 20230418
  Serious: Yes (Hospitalization)
  Sender: FDA-Public Use
  Company Number: PHHY2018AT155908

PATIENT
  Age: 51 Year
  Sex: Female
  Weight: 53 kg

DRUGS (18)
  1. DOCETAXEL [Suspect]
     Active Substance: DOCETAXEL
     Indication: Breast cancer
     Dosage: 50 MG, TIW (MOST RECENT DOSE PRIOR TO THE EVENT: 19/JUL/2018)
     Route: 042
     Dates: start: 20180628, end: 20180628
  2. TRASTUZUMAB [Suspect]
     Active Substance: TRASTUZUMAB
     Indication: Breast cancer
     Dosage: 8 MG, QD (MOST RECENT DOSE PRIOR TO THE EVENT: 19 JUL 2018)
     Route: 042
     Dates: start: 20180628, end: 20180628
  3. PERTUZUMAB [Suspect]
     Active Substance: PERTUZUMAB
     Indication: Breast cancer
     Dosage: 840 MG, QD (MOST RECENT DOSE PRIOR TO THE EVENT: 19/JUL/2018)
     Route: 065
     Dates: start: 20180628, end: 20180628
  4. HALCION [Concomitant]
     Active Substance: TRIAZOLAM
     Indication: Product used for unknown indication
     Dosage: UNK (ONGOING, CHECKED)
     Route: 065
     Dates: start: 20181018
  5. NOVALGIN (METAMIZOLE SODIUM) [Concomitant]
     Active Substance: METAMIZOLE SODIUM
     Indication: Product used for unknown indication
     Dosage: UNK (ONGOING = CHECKED)
     Route: 065
     Dates: start: 20180615
  6. ALPRAZOLAM [Concomitant]
     Active Substance: ALPRAZOLAM
     Indication: Product used for unknown indication
     Dosage: UNK (ONGOIN,  NOT CHECKED)
     Route: 065
     Dates: start: 20180615, end: 20181015
  7. EMEND [Concomitant]
     Active Substance: APREPITANT
     Indication: Product used for unknown indication
     Dosage: UNK (ONGOING, CHECKED)
     Route: 065
     Dates: start: 20180809
  8. ZOFRAN [Concomitant]
     Active Substance: ONDANSETRON HYDROCHLORIDE
     Indication: Product used for unknown indication
     Dosage: UNK (ONGOING, CHECKED)
     Route: 065
     Dates: start: 20180715
  9. DIMETHINDENE [Concomitant]
     Active Substance: DIMETHINDENE
     Indication: Product used for unknown indication
     Dosage: UNK (ONGOING, CHECKED)
     Route: 065
     Dates: start: 20180628
  10. SPIRONOLACTONE [Concomitant]
     Active Substance: SPIRONOLACTONE
     Indication: Product used for unknown indication
     Dosage: UNK (ONGOING, CHECKED)
     Route: 065
     Dates: start: 20180830
  11. PANTOPRAZOLE SODIUM [Concomitant]
     Active Substance: PANTOPRAZOLE SODIUM
     Indication: Product used for unknown indication
     Dosage: UNK (ONGOING, CHECKED)
     Route: 065
     Dates: start: 20180715
  12. BIOFLORIN [Concomitant]
     Indication: Product used for unknown indication
     Dosage: UNK
     Route: 065
  13. LOVENOX [Concomitant]
     Active Substance: ENOXAPARIN SODIUM
     Indication: Product used for unknown indication
     Dosage: UNK (ONGOING, CHECKED)
     Route: 065
     Dates: start: 20180715
  14. NEULASTA [Concomitant]
     Active Substance: PEGFILGRASTIM
     Indication: Product used for unknown indication
     Dosage: UNK (ONGOING, CHECKED)
     Route: 065
     Dates: start: 20180720
  15. POLYETHYLENE GLYCOL 3350\POTASSIUM CHLORIDE\SODIUM BICARBONATE\SODIUM [Concomitant]
     Active Substance: POLYETHYLENE GLYCOL 3350\POTASSIUM CHLORIDE\SODIUM BICARBONATE\SODIUM CHLORIDE
     Indication: Product used for unknown indication
     Dosage: UNK (ONGOING, CHECKED)
     Route: 065
  16. DEXAMETHASONE [Concomitant]
     Active Substance: DEXAMETHASONE
     Indication: Product used for unknown indication
     Dosage: UNK (ONGOING, CHECKED)
     Route: 065
     Dates: start: 20180628
  17. ENALAPRIL [Concomitant]
     Active Substance: ENALAPRIL
     Indication: Left ventricular dysfunction
     Dosage: UNK
     Route: 065
     Dates: start: 20180809
  18. BISOPROLOL [Concomitant]
     Active Substance: BISOPROLOL
     Indication: Left ventricular dysfunction
     Dosage: UNK
     Route: 065

REACTIONS (2)
  - C-reactive protein increased [Recovered/Resolved]
  - Diarrhoea [Recovered/Resolved]

NARRATIVE: CASE EVENT DATE: 20181010
